FAERS Safety Report 6744887-6 (Version None)
Quarter: 2010Q2

REPORT INFORMATION
  Report Type: 
  Country: None (occurrence: None)
  Receive Date: 20100527
  Receipt Date: 20100428
  Transmission Date: 20101027
  Serious: No
  Sender: FDA-Public Use
  Company Number: US-BRISTOL-MYERS SQUIBB COMPANY-15082894

PATIENT
  Sex: Male

DRUGS (1)
  1. ONGLYZA [Suspect]
     Indication: DIABETES MELLITUS

REACTIONS (4)
  - DIARRHOEA [None]
  - DYSPNOEA [None]
  - NAUSEA [None]
  - VOMITING [None]
